FAERS Safety Report 9105274 (Version 1)
Quarter: 2013Q1

REPORT INFORMATION
  Report Type: Spontaneous
  Country: US (occurrence: US)
  Receive Date: 20130220
  Receipt Date: 20130220
  Transmission Date: 20140127
  Serious: Yes (Death)
  Sender: FDA-Public Use
  Company Number: US-GLAXOSMITHKLINE-A1012051A

PATIENT
  Age: 85 Year
  Sex: Female

DRUGS (3)
  1. ARIXTRA [Suspect]
     Indication: PRODUCT USED FOR UNKNOWN INDICATION
     Route: 058
  2. CHEMOTHERAPY [Concomitant]
  3. UNKNOWN [Concomitant]

REACTIONS (2)
  - Death [Fatal]
  - Malignant neoplasm progression [Unknown]
